FAERS Safety Report 5514388-1 (Version None)
Quarter: 2007Q4

REPORT INFORMATION
  Report Type: 
  Country: None (occurrence: None)
  Receive Date: 20071113
  Receipt Date: 20070504
  Transmission Date: 20080405
  Serious: No
  Sender: FDA-Public Use
  Company Number: A0649981A

PATIENT
  Age: 85 Year
  Sex: Female

DRUGS (5)
  1. COREG [Suspect]
     Indication: HYPERTENSION
     Dosage: 3.125MG TWICE PER DAY
     Route: 048
     Dates: start: 20070201
  2. GLUCOSAMINE [Concomitant]
  3. VIT E [Concomitant]
  4. CENTRUM SILVER [Concomitant]
  5. CALCIUM [Concomitant]

REACTIONS (2)
  - DIZZINESS [None]
  - POLLAKIURIA [None]
